FAERS Safety Report 10785591 (Version 1)
Quarter: 2015Q1

REPORT INFORMATION
  Report Type: Other
  Country: FR (occurrence: FR)
  Receive Date: 20150211
  Receipt Date: 20150211
  Transmission Date: 20150721
  Serious: Yes (Other)
  Sender: FDA-Public Use
  Company Number: FR-MYLANLABS-2015M1002556

PATIENT

DRUGS (1)
  1. ACICLOVIR MYLAN PHARMA 5 % CR?ME [Suspect]
     Active Substance: ACYCLOVIR
     Indication: OPHTHALMIC HERPES SIMPLEX
     Dosage: 1 DF, TID
     Route: 047
     Dates: start: 20141217, end: 20141217

REACTIONS (5)
  - Medication error [Recovered/Resolved]
  - Drug dispensing error [Recovered/Resolved]
  - Drug dispensing error [None]
  - Eye irritation [Recovered/Resolved]
  - Wrong drug administered [None]

NARRATIVE: CASE EVENT DATE: 20141217
